FAERS Safety Report 11895158 (Version 1)
Quarter: 2016Q1

REPORT INFORMATION
  Report Type: Spontaneous
  Country: US (occurrence: None)
  Receive Date: 20160106
  Receipt Date: 20160106
  Transmission Date: 20160526
  Serious: Yes (Life-Threatening)
  Sender: FDA-Public Use
  Company Number: None

PATIENT
  Age: 27 Year
  Sex: Female
  Weight: 51.71 kg

DRUGS (5)
  1. FLOVENT [Concomitant]
     Active Substance: FLUTICASONE PROPIONATE
  2. LUVOX CR [Concomitant]
     Active Substance: FLUVOXAMINE MALEATE
  3. VYVANSE [Concomitant]
     Active Substance: LISDEXAMFETAMINE DIMESYLATE
  4. LOESTRIM [Concomitant]
  5. RESTASIS [Suspect]
     Active Substance: CYCLOSPORINE
     Indication: DRY EYE
     Dosage: ONE VILE TWICE DAILY INTO THE EYE
     Dates: start: 20140603, end: 20151224

REACTIONS (3)
  - Incorrect drug administration duration [None]
  - Influenza like illness [None]
  - Pancreatitis [None]

NARRATIVE: CASE EVENT DATE: 20151224
